FAERS Safety Report 4615565-4 (Version None)
Quarter: 2005Q1

REPORT INFORMATION
  Report Type: 
  Country: None (occurrence: None)
  Receive Date: 20050317
  Receipt Date: 20050304
  Transmission Date: 20050727
  Serious: Yes (Other)
  Sender: FDA-Public Use
  Company Number: 2004120738

PATIENT
  Age: 62 Year
  Sex: Female

DRUGS (7)
  1. DETROL LA [Suspect]
     Indication: INCONTINENCE
     Dosage: 4 MG (4 MG, 1 IN 1 D), ORAL
     Route: 048
  2. ROFECOXIB [Concomitant]
  3. DIAZEPAM [Concomitant]
  4. RANITIDINE HYDROCHLORIDE [Concomitant]
  5. ALENDRONATE SODIUM [Concomitant]
  6. CONJUGATED ESTROGENS [Concomitant]
  7. VICODIN [Concomitant]

REACTIONS (3)
  - BLADDER OPERATION [None]
  - DRY MOUTH [None]
  - HYSTERECTOMY [None]
